FAERS Safety Report 17482156 (Version 7)
Quarter: 2021Q1

REPORT INFORMATION
  Report Type: Spontaneous
  Country: US (occurrence: US)
  Receive Date: 20200302
  Receipt Date: 20210209
  Transmission Date: 20210419
  Serious: Yes (Other)
  Sender: FDA-Public Use
  Company Number: US-GILEAD-2020-0452909

PATIENT
  Age: 41 Year
  Sex: Male
  Weight: 79.37 kg

DRUGS (84)
  1. BENICAR [Concomitant]
     Active Substance: OLMESARTAN MEDOXOMIL
     Dosage: UNK
     Dates: start: 20090312, end: 20100304
  2. FLUTICASONE. [Concomitant]
     Active Substance: FLUTICASONE
     Dosage: UNK
     Dates: start: 20111118, end: 20111204
  3. TORADOL [Concomitant]
     Active Substance: KETOROLAC TROMETHAMINE
  4. CIALIS [Concomitant]
     Active Substance: TADALAFIL
     Dosage: UNK
     Dates: start: 20150818, end: 20150821
  5. CEPHALEXIN AMEL [Concomitant]
     Active Substance: CEPHALEXIN
     Dosage: UNK
     Dates: start: 20130211, end: 20130221
  6. EPIVIR [Concomitant]
     Active Substance: LAMIVUDINE
  7. LISINOPRIL. [Concomitant]
     Active Substance: LISINOPRIL
     Indication: HYPERTENSION
     Dosage: UNK
     Dates: start: 20090105, end: 200903
  8. AMLODIPINE [Concomitant]
     Active Substance: AMLODIPINE BESYLATE
     Indication: HYPERTENSION
     Dosage: UNK
     Dates: start: 20190409
  9. LEVOFLOXACIN. [Concomitant]
     Active Substance: LEVOFLOXACIN
     Dosage: UNK
     Dates: start: 20160212, end: 20160219
  10. SIMETHICONE (DIMETHICONE) [Concomitant]
     Active Substance: DIMETHICONE
     Dosage: UNK
     Dates: start: 20070501, end: 20070504
  11. HYDROCORTISONE. [Concomitant]
     Active Substance: HYDROCORTISONE
     Dosage: UNK
     Dates: start: 20190424, end: 2019
  12. FINACEA [Concomitant]
     Active Substance: AZELAIC ACID
     Indication: ROSACEA
     Dosage: UNK
     Dates: start: 20100503, end: 201509
  13. KALETRA [Concomitant]
     Active Substance: LOPINAVIR\RITONAVIR
  14. LOPID [Concomitant]
     Active Substance: GEMFIBROZIL
  15. HYDROCODONE/ACETAMINOPHEN [Concomitant]
     Active Substance: ACETAMINOPHEN\HYDROCODONE
  16. ZERIT [Concomitant]
     Active Substance: STAVUDINE
  17. AMOXICILLIN. [Concomitant]
     Active Substance: AMOXICILLIN
     Dosage: UNK
     Dates: start: 200610, end: 202009
  18. COX?2 [CELECOXIB] [Concomitant]
     Active Substance: CELECOXIB
  19. FAMOTIDINE. [Concomitant]
     Active Substance: FAMOTIDINE
  20. PREDNISONE. [Concomitant]
     Active Substance: PREDNISONE
     Dosage: UNK
     Dates: start: 20111118, end: 20111118
  21. SSRI [Concomitant]
     Active Substance: UNSPECIFIED INGREDIENT
  22. NORVIR [Concomitant]
     Active Substance: RITONAVIR
     Indication: HIV INFECTION
     Dosage: UNK
     Dates: start: 20070426, end: 201904
  23. CIPROFLAXINA HC LAZAR [Concomitant]
     Dosage: UNK
     Dates: start: 20090312, end: 20090322
  24. GLIMEPIRIDE. [Concomitant]
     Active Substance: GLIMEPIRIDE
     Dosage: UNK
     Dates: start: 2019
  25. MAGNESIUM CITRATE. [Concomitant]
     Active Substance: MAGNESIUM CITRATE
     Dosage: UNK
     Dates: start: 20070501, end: 20080225
  26. ROCEPHINE [Concomitant]
     Active Substance: CEFTRIAXONE SODIUM
     Dosage: UNK
     Dates: start: 20061027
  27. VIAGRA CONNECT [Concomitant]
     Active Substance: SILDENAFIL CITRATE
     Indication: ERECTILE DYSFUNCTION
     Dosage: UNK
     Dates: start: 20150427, end: 201505
  28. SELENIUM [SELENIUM SULFIDE] [Concomitant]
     Indication: DANDRUFF
     Dosage: UNK
     Dates: start: 20080725, end: 201205
  29. ANTACIDS [Concomitant]
     Active Substance: UNSPECIFIED INGREDIENT
  30. CORTISONE [Concomitant]
     Active Substance: CORTISONE
     Dosage: UNK
     Dates: start: 20170701, end: 20170707
  31. GEMFIBROZIL. [Concomitant]
     Active Substance: GEMFIBROZIL
     Dosage: UNK
     Dates: start: 200701, end: 20151116
  32. COZAAR [Concomitant]
     Active Substance: LOSARTAN POTASSIUM
     Dosage: UNK
     Dates: start: 20100602, end: 201106
  33. METOCLOPRAMIDE. [Concomitant]
     Active Substance: METOCLOPRAMIDE
     Dosage: UNK
     Dates: start: 20070501, end: 20070502
  34. HYDROCORTISONE. [Concomitant]
     Active Substance: HYDROCORTISONE
     Dosage: UNK
     Dates: start: 20170701, end: 20170707
  35. ZYRTEC [Concomitant]
     Active Substance: CETIRIZINE HYDROCHLORIDE
  36. CLINDAMYCIN. [Concomitant]
     Active Substance: CLINDAMYCIN
     Indication: ACNE
     Dosage: UNK
     Dates: start: 20080612, end: 20080824
  37. FINACEA [Concomitant]
     Active Substance: AZELAIC ACID
     Indication: ACNE
  38. CELEBREX [Concomitant]
     Active Substance: CELECOXIB
     Dosage: UNK
     Dates: start: 20091102
  39. SERTRALINE [Concomitant]
     Active Substance: SERTRALINE HYDROCHLORIDE
     Dosage: UNK
     Dates: start: 20140109, end: 20150416
  40. HYDROCHLOROTHIAZIDE. [Concomitant]
     Active Substance: HYDROCHLOROTHIAZIDE
     Dosage: UNK
     Dates: start: 20171103, end: 20181016
  41. POLYETHYLENE GLYCOL;PROPYLENE GLYCOL [Concomitant]
     Dosage: UNK
     Dates: start: 20070520, end: 20200624
  42. GABAPENTIN. [Concomitant]
     Active Substance: GABAPENTIN
     Indication: HYPERTENSION
     Dosage: UNK
     Dates: start: 200701, end: 201510
  43. FINASTERIDE. [Concomitant]
     Active Substance: FINASTERIDE
     Dosage: UNK
     Dates: start: 20150814
  44. PERMETHRIN. [Concomitant]
     Active Substance: PERMETHRIN
     Indication: ACARODERMATITIS
     Dosage: UNK
     Dates: start: 20170705, end: 201708
  45. CYCLOBENZAPRINE. [Concomitant]
     Active Substance: CYCLOBENZAPRINE
     Indication: MUSCLE SPASMS
     Dosage: UNK
     Dates: start: 2011
  46. TRUVADA [Suspect]
     Active Substance: EMTRICITABINE\TENOFOVIR DISOPROXIL FUMARATE
     Indication: HIV INFECTION
     Dosage: UNK
     Route: 048
     Dates: start: 2005, end: 20120706
  47. VIREAD [Suspect]
     Active Substance: TENOFOVIR DISOPROXIL FUMARATE
     Indication: HIV INFECTION
     Dosage: UNK
     Route: 065
     Dates: start: 2003, end: 2005
  48. PANTOPRAZOLE [Concomitant]
     Active Substance: PANTOPRAZOLE
  49. RANITIDINE. [Concomitant]
     Active Substance: RANITIDINE
     Dosage: UNK
     Dates: start: 20101208, end: 20151020
  50. EPZICOM [Concomitant]
     Active Substance: ABACAVIR SULFATE\LAMIVUDINE
     Indication: HIV INFECTION
     Dosage: UNK
     Dates: start: 20120731, end: 20151018
  51. CLOBETASOL PROPIONATE. [Concomitant]
     Active Substance: CLOBETASOL PROPIONATE
     Dosage: UNK
     Dates: start: 20110510, end: 20110604
  52. VENLAFAXINE [Concomitant]
     Active Substance: VENLAFAXINE HYDROCHLORIDE
     Indication: DEPRESSION
     Dosage: UNK
     Dates: start: 20190327
  53. DOXYCYCLINE. [Concomitant]
     Active Substance: DOXYCYCLINE
     Dosage: UNK
     Dates: start: 20080515, end: 20080612
  54. ACETAMINOPHEN. [Concomitant]
     Active Substance: ACETAMINOPHEN
  55. INVIRASE [Concomitant]
     Active Substance: SAQUINAVIR MESYLATE
  56. KLOR?CON M20 [Concomitant]
     Active Substance: POTASSIUM CHLORIDE
  57. BACTRIM [Concomitant]
     Active Substance: SULFAMETHOXAZOLE\TRIMETHOPRIM
     Dosage: UNK
     Dates: start: 20071221, end: 20071228
  58. METHYLPREDNISOLONE. [Concomitant]
     Active Substance: METHYLPREDNISOLONE
     Dosage: UNK
     Dates: start: 20090805, end: 201610
  59. OMEPRAZOLE. [Concomitant]
     Active Substance: OMEPRAZOLE
  60. FLUOXETINE [Concomitant]
     Active Substance: FLUOXETINE HYDROCHLORIDE
     Dosage: UNK
     Dates: start: 20190123, end: 201903
  61. TRIAMCINOLONE [Concomitant]
     Active Substance: TRIAMCINOLONE
     Dosage: UNK
     Dates: start: 20080515, end: 200806
  62. DULOXETINE. [Concomitant]
     Active Substance: DULOXETINE
     Indication: DEPRESSION
     Dosage: UNK
     Dates: start: 20181021, end: 20190423
  63. LEXAPRO [Concomitant]
     Active Substance: ESCITALOPRAM OXALATE
     Dosage: UNK
     Dates: start: 20140109
  64. RANITIDINE. [Concomitant]
     Active Substance: RANITIDINE
     Dosage: UNK
     Dates: start: 20101208, end: 20151020
  65. VITAMIN D2 [Concomitant]
     Active Substance: ERGOCALCIFEROL
     Indication: VITAMIN D DEFICIENCY
     Dosage: UNK
     Dates: start: 20080819, end: 20080919
  66. CLENIA [Concomitant]
     Active Substance: SULFACETAMIDE SODIUM\SULFUR
     Indication: ACNE
     Dosage: UNK
     Dates: start: 20081006, end: 200910
  67. CORTICOSTEROIDS [Concomitant]
     Active Substance: CORTICOSTEROID NOS
  68. AVELOX [Concomitant]
     Active Substance: MOXIFLOXACIN HYDROCHLORIDE
     Dosage: UNK
     Dates: start: 20070409, end: 200705
  69. ARIPIPRAZOLE. [Concomitant]
     Active Substance: ARIPIPRAZOLE
     Indication: ANXIETY
     Dosage: UNK
     Dates: start: 20161220, end: 20161225
  70. XYLOCAINE #1 [Concomitant]
     Active Substance: LIDOCAINE
     Dosage: UNK
     Dates: start: 20061027
  71. BUPROPION. [Concomitant]
     Active Substance: BUPROPION
     Dosage: UNK
     Dates: start: 20150619, end: 20190409
  72. TRAMADOL. [Concomitant]
     Active Substance: TRAMADOL
     Dosage: UNK
     Dates: start: 20110511, end: 201107
  73. METRONIDAZOLE. [Concomitant]
     Active Substance: METRONIDAZOLE
     Dosage: UNK
     Dates: start: 20130801, end: 20190520
  74. PIOGLITAZONE. [Concomitant]
     Active Substance: PIOGLITAZONE
  75. LORAZEPAM. [Concomitant]
     Active Substance: LORAZEPAM
     Dosage: UNK
     Dates: start: 20150618
  76. FLOMAX [MORNIFLUMATE] [Concomitant]
     Active Substance: MORNIFLUMATE
     Dosage: UNK
     Dates: start: 20111202, end: 201201
  77. NSAIDS [Concomitant]
     Active Substance: UNSPECIFIED INGREDIENT
  78. PENICILLIN NOS [Concomitant]
     Active Substance: PENICILLIN
     Dosage: UNK
     Dates: start: 20120730, end: 20120806
  79. PRAVASTATIN. [Concomitant]
     Active Substance: PRAVASTATIN
     Dosage: UNK
     Dates: start: 200701, end: 20151021
  80. QUINOLONES [Concomitant]
     Active Substance: UNSPECIFIED INGREDIENT
  81. THIAZIDES, PLAIN [Concomitant]
     Active Substance: UNSPECIFIED INGREDIENT
  82. LEXIVA [Concomitant]
     Active Substance: FOSAMPRENAVIR CALCIUM
     Indication: HIV INFECTION
     Dosage: UNK
     Dates: start: 20070425, end: 201904
  83. PIFELTRO [Concomitant]
     Active Substance: DORAVIRINE
     Indication: HIV INFECTION
     Dosage: UNK
     Dates: start: 2019
  84. TRIUMEQ [Concomitant]
     Active Substance: ABACAVIR SULFATE\DOLUTEGRAVIR SODIUM\LAMIVUDINE
     Indication: HIV INFECTION
     Dosage: UNK
     Dates: start: 20190424, end: 2019

REACTIONS (7)
  - Economic problem [Unknown]
  - Anhedonia [Unknown]
  - Emotional distress [Unknown]
  - Anxiety [Unknown]
  - Renal failure [Recovering/Resolving]
  - Pain [Unknown]
  - Chronic kidney disease [Not Recovered/Not Resolved]

NARRATIVE: CASE EVENT DATE: 20080320
